FAERS Safety Report 4609443-4 (Version None)
Quarter: 2005Q1

REPORT INFORMATION
  Report Type: 
  Country: None (occurrence: None)
  Receive Date: 20050314
  Receipt Date: 20050307
  Transmission Date: 20050727
  Serious: No
  Sender: FDA-Public Use
  Company Number: 2005SE01379

PATIENT
  Age: 62 Year
  Sex: Male

DRUGS (3)
  1. BLOPRESS [Suspect]
     Indication: HYPERTENSION
     Dosage: 4 MG QD PO
     Route: 048
     Dates: end: 20050221
  2. ALLEGRA [Suspect]
     Dosage: 60 MG BID PO
     Route: 048
  3. HACHIMIJIO-GAN [Suspect]
     Dosage: 9 DF QD PO
     Route: 048

REACTIONS (10)
  - BLOOD PRESSURE DECREASED [None]
  - COMA [None]
  - CONSCIOUSNESS FLUCTUATING [None]
  - DECEREBRATION [None]
  - DRUG INTERACTION [None]
  - FALL [None]
  - HEMIPLEGIA [None]
  - MUSCLE RIGIDITY [None]
  - MUSCLE SPASMS [None]
  - VISUAL DISTURBANCE [None]
